FAERS Safety Report 9805033 (Version 2)
Quarter: 2015Q1

REPORT INFORMATION
  Report Type: Report from Study
  Country: US (occurrence: US)
  Receive Date: 20140109
  Receipt Date: 20150319
  Transmission Date: 20150721
  Serious: Yes (Death)
  Sender: FDA-Public Use
  Company Number: US-ROCHE-1323733

PATIENT
  Sex: Male
  Weight: 83.08 kg

DRUGS (20)
  1. XELODA [Suspect]
     Active Substance: CAPECITABINE
     Dosage: 70 TABLETS PER CYCLE; 7DAYS EVERY OTHER WEEK ?500 MG* 5 TABLETS= 2500 MG
     Route: 048
  2. AVASTIN [Suspect]
     Active Substance: BEVACIZUMAB
     Route: 042
     Dates: start: 20110824
  3. IRINOTECAN [Concomitant]
     Active Substance: IRINOTECAN
     Dosage: 378 MG; DAY1
     Route: 042
  4. ALOXI [Concomitant]
     Active Substance: PALONOSETRON HYDROCHLORIDE
     Route: 042
  5. ALOXI [Concomitant]
     Active Substance: PALONOSETRON HYDROCHLORIDE
     Route: 042
  6. ATROPINE [Concomitant]
     Active Substance: ATROPINE
     Dosage: DAY 1
     Route: 042
  7. OXALIPLATIN. [Concomitant]
     Active Substance: OXALIPLATIN
     Route: 042
  8. AVASTIN [Suspect]
     Active Substance: BEVACIZUMAB
     Dosage: 06/SEP/2011, , 21/SEP/2011, 5/OCT/2011, 03/JAN/2012, 17/JAN/2012, 31/JAN/2012, 14/FEB/2012, 28/FEB/2
     Route: 042
  9. AVASTIN [Suspect]
     Active Substance: BEVACIZUMAB
     Indication: HEPATIC CANCER
     Dosage: 9/AUG/2011; 22/AUG/2011
     Route: 042
  10. AVASTIN [Suspect]
     Active Substance: BEVACIZUMAB
     Dosage: 14/MAR/2012.
     Route: 042
  11. GRANISETRON [Suspect]
     Active Substance: GRANISETRON
     Indication: PRODUCT USED FOR UNKNOWN INDICATION
     Route: 042
  12. EPOETIN ALFA [Concomitant]
     Active Substance: ERYTHROPOIETIN
     Dosage: DAY 1
     Route: 058
  13. DECADRON [Concomitant]
     Active Substance: DEXAMETHASONE
     Dosage: DAY 1
     Route: 042
  14. XELODA [Suspect]
     Active Substance: CAPECITABINE
     Indication: HEPATIC CANCER
     Route: 048
  15. PROCRIT [Concomitant]
     Active Substance: ERYTHROPOIETIN
     Route: 058
  16. XELODA [Suspect]
     Active Substance: CAPECITABINE
     Indication: COLON CANCER
     Dosage: 1200/M2 BID X 7; OFF 7 Q 2 WEEKS = 2400 BID X 7?EVERY OTHER WEEK
     Route: 048
  17. OXALIPLATIN. [Concomitant]
     Active Substance: OXALIPLATIN
     Dosage: 06/SEP/2011
     Route: 042
  18. ONDANSETRON HYDROCHLORIDE. [Concomitant]
     Active Substance: ONDANSETRON HYDROCHLORIDE
     Route: 042
  19. AVASTIN [Suspect]
     Active Substance: BEVACIZUMAB
     Indication: COLON CANCER
     Route: 042
  20. OXALIPLATIN. [Concomitant]
     Active Substance: OXALIPLATIN
     Route: 042

REACTIONS (2)
  - Colon cancer [Fatal]
  - Disease progression [Not Recovered/Not Resolved]
